FAERS Safety Report 23428315 (Version 1)
Quarter: 2024Q1

REPORT INFORMATION
  Report Type: Spontaneous
  Country: DE (occurrence: DE)
  Receive Date: 20240122
  Receipt Date: 20240122
  Transmission Date: 20240409
  Serious: Yes (Other)
  Sender: FDA-Public Use
  Company Number: DE-PIRAMAL CRITICAL CARE LIMITED-2024-PPL-000008

PATIENT

DRUGS (11)
  1. SEVOFLURANE [Suspect]
     Active Substance: SEVOFLURANE
     Indication: Sedation
     Dosage: CONCENTRATIONS BETWEEN 0.7 AND 1.0 MAC.
  2. SUFENTANIL [Suspect]
     Active Substance: SUFENTANIL
     Indication: Analgesic therapy
     Dosage: UNK
  3. SUFENTANIL [Suspect]
     Active Substance: SUFENTANIL
     Indication: Sedation
  4. PROPOFOL [Suspect]
     Active Substance: PROPOFOL
     Indication: Analgesic therapy
     Dosage: UNK
  5. PROPOFOL [Suspect]
     Active Substance: PROPOFOL
     Indication: Sedation
  6. LORMETAZEPAM [Suspect]
     Active Substance: LORMETAZEPAM
     Indication: Analgesic therapy
     Dosage: UNK
  7. LORMETAZEPAM [Suspect]
     Active Substance: LORMETAZEPAM
     Indication: Sedation
  8. OXYGEN [Concomitant]
     Active Substance: OXYGEN
     Indication: Oxygen therapy
     Dosage: INITIALLY 4 L/MIN O2 VIA NASAL CANNULA, PERIPHERAL OXYGEN SATURATION 94% WITH THIS
     Route: 045
  9. OXYGEN [Concomitant]
     Active Substance: OXYGEN
     Dosage: 12 L/MIN O2 VIA AN INSUFFLATION MASK
     Route: 045
  10. MORPHINE [Concomitant]
     Active Substance: MORPHINE
     Indication: Supportive care
     Dosage: PERFORMED TO POSITIVELY INFLUENCE DYSPNEA AND ANXIETY
     Route: 042
  11. DEXAMETHASONE [Concomitant]
     Active Substance: DEXAMETHASONE
     Indication: Product used for unknown indication
     Dosage: 6 MG/DAY FOR A TOTAL OF 10 DAYS ACCORDING TO THE GUIDELINES
     Route: 042

REACTIONS (5)
  - Diabetes insipidus [Recovering/Resolving]
  - Hypernatraemia [Recovering/Resolving]
  - Blood triglycerides increased [Unknown]
  - Off label use [Unknown]
  - Product use in unapproved indication [Unknown]
